FAERS Safety Report 4526986-2 (Version None)
Quarter: 2004Q4

REPORT INFORMATION
  Report Type: 
  Country: None (occurrence: None)
  Receive Date: 20041213
  Receipt Date: 20041130
  Transmission Date: 20050328
  Serious: Yes (Hospitalization, Other)
  Sender: FDA-Public Use
  Company Number: 2004092934

PATIENT
  Age: 50 Year
  Sex: Female
  Weight: 42 kg

DRUGS (5)
  1. AZULFIDINE EN-TABS [Suspect]
     Indication: RHEUMATOID ARTHRITIS
     Dosage: 500 MG (250 MG, 1 IN 2 D), ORAL
     Route: 048
     Dates: start: 20041026, end: 20041112
  2. ALENDRONATE SODIUM [Concomitant]
  3. PREDNISOLONE [Concomitant]
  4. CALCITRIOL [Concomitant]
  5. CORTICOSTEROIDS (CORTICOSTEROIDS) [Concomitant]

REACTIONS (7)
  - DIARRHOEA [None]
  - DISEASE RECURRENCE [None]
  - HEPATIC FUNCTION ABNORMAL [None]
  - PRODUCTIVE COUGH [None]
  - PRURITUS [None]
  - PYOTHORAX [None]
  - RASH GENERALISED [None]
